FAERS Safety Report 4621363-8 (Version None)
Quarter: 2005Q1

REPORT INFORMATION
  Report Type: 
  Country: None (occurrence: None)
  Receive Date: 20050323
  Receipt Date: 20050323
  Transmission Date: 20050727
  Serious: Yes (Other)
  Sender: FDA-Public Use
  Company Number: None

PATIENT
  Age: 25 Year
  Sex: Female
  Weight: 86.1834 kg

DRUGS (1)
  1. THIOTHIXENE [Suspect]
     Dosage: 15 MG  QD   ORAL
     Route: 048

REACTIONS (1)
  - BLOOD PROLACTIN INCREASED [None]
